FAERS Safety Report 5193991-5 (Version None)
Quarter: 2006Q4

REPORT INFORMATION
  Report Type: 
  Country: None (occurrence: None)
  Receive Date: 20061228
  Receipt Date: 20060914
  Transmission Date: 20070319
  Serious: No
  Sender: FDA-Public Use
  Company Number: US-GLAXOSMITHKLINE-A0620165A

PATIENT
  Age: 4 Year
  Sex: Male

DRUGS (5)
  1. FLOVENT [Suspect]
     Indication: ASTHMA
     Dosage: 2PUFF TWICE PER DAY
     Route: 055
     Dates: start: 20060127
  2. PULMICORT [Concomitant]
  3. XOPENEX [Concomitant]
  4. NASONEX [Concomitant]
  5. SINGULAIR [Concomitant]

REACTIONS (1)
  - PRURITUS GENERALISED [None]
